FAERS Safety Report 25730280 (Version 1)
Quarter: 2025Q3

REPORT INFORMATION
  Report Type: Spontaneous
  Country: CA (occurrence: CA)
  Receive Date: 20250827
  Receipt Date: 20250827
  Transmission Date: 20251020
  Serious: Yes (Other)
  Sender: NOVARTIS
  Company Number: CA-HALEON-2258802

PATIENT
  Age: 61 Year
  Sex: Male

DRUGS (12)
  1. DICLOFENAC [Suspect]
     Active Substance: DICLOFENAC
     Indication: Migraine
     Route: 065
  2. CANDESARTAN [Suspect]
     Active Substance: CANDESARTAN
     Indication: Migraine
     Route: 048
  3. PROPRANOLOL [Suspect]
     Active Substance: PROPRANOLOL HYDROCHLORIDE
     Indication: Migraine
     Route: 065
  4. TEGRETOL [Suspect]
     Active Substance: CARBAMAZEPINE
     Indication: Migraine
     Route: 065
  5. ZOPICLONE [Suspect]
     Active Substance: ZOPICLONE
     Indication: Migraine
     Route: 065
  6. METOPROLOL [Suspect]
     Active Substance: METOPROLOL
     Indication: Migraine
     Route: 065
  7. NORTRIPTYLINE [Concomitant]
     Active Substance: NORTRIPTYLINE
     Indication: Product used for unknown indication
     Route: 065
  8. TOPIRAMATE [Concomitant]
     Active Substance: TOPIRAMATE
     Indication: Product used for unknown indication
     Route: 065
  9. HYDROCHLOROTHIAZIDE [Concomitant]
     Active Substance: HYDROCHLOROTHIAZIDE
     Indication: Product used for unknown indication
     Route: 065
  10. LYRICA [Concomitant]
     Active Substance: PREGABALIN
     Indication: Product used for unknown indication
     Route: 065
  11. CETIRIZINE [Concomitant]
     Active Substance: CETIRIZINE HYDROCHLORIDE
     Indication: Product used for unknown indication
     Route: 065
  12. ROSUVASTATIN [Concomitant]
     Active Substance: ROSUVASTATIN
     Indication: Product used for unknown indication
     Route: 058

REACTIONS (18)
  - Craniofacial fracture [Not Recovered/Not Resolved]
  - Fatigue [Not Recovered/Not Resolved]
  - Photophobia [Not Recovered/Not Resolved]
  - Paraesthesia [Not Recovered/Not Resolved]
  - Memory impairment [Not Recovered/Not Resolved]
  - Burning sensation [Not Recovered/Not Resolved]
  - Phonophobia [Not Recovered/Not Resolved]
  - Tinnitus [Not Recovered/Not Resolved]
  - Bone disorder [Not Recovered/Not Resolved]
  - Nausea [Not Recovered/Not Resolved]
  - Apathy [Not Recovered/Not Resolved]
  - Facial pain [Not Recovered/Not Resolved]
  - Off label use [Not Recovered/Not Resolved]
  - Trigeminal neuralgia [Not Recovered/Not Resolved]
  - Hypoaesthesia [Not Recovered/Not Resolved]
  - Fall [Not Recovered/Not Resolved]
  - Sluggishness [Not Recovered/Not Resolved]
  - Asthenia [Not Recovered/Not Resolved]
